FAERS Safety Report 6215429-9 (Version None)
Quarter: 2009Q2

REPORT INFORMATION
  Report Type: 
  Country: None (occurrence: None)
  Receive Date: 20090603
  Receipt Date: 20090529
  Transmission Date: 20091009
  Serious: Yes (Hospitalization)
  Sender: FDA-Public Use
  Company Number: SPV1-2009-00997

PATIENT
  Sex: Female
  Weight: 57.6 kg

DRUGS (3)
  1. PENTASA [Suspect]
     Indication: CROHN'S DISEASE
     Dosage: 4 G DAILY, ORAL ; 1.5 G DAILY, ORAL
     Route: 048
     Dates: start: 19990101, end: 20081201
  2. PENTASA [Suspect]
     Indication: CROHN'S DISEASE
     Dosage: 4 G DAILY, ORAL ; 1.5 G DAILY, ORAL
     Route: 048
     Dates: end: 20081201
  3. NAPRONAC (NAPROXEN) [Concomitant]

REACTIONS (9)
  - CONDITION AGGRAVATED [None]
  - CROHN'S DISEASE [None]
  - DEPRESSION [None]
  - INCORRECT DOSE ADMINISTERED [None]
  - INFECTION [None]
  - INTESTINAL FISTULA [None]
  - NAUSEA [None]
  - OFF LABEL USE [None]
  - VOMITING [None]
